FAERS Safety Report 23702313 (Version 1)
Quarter: 2024Q2

REPORT INFORMATION
  Report Type: Spontaneous
  Country: US (occurrence: None)
  Receive Date: 20240402
  Receipt Date: 20240402
  Transmission Date: 20240716
  Serious: Yes (Death)
  Sender: FDA-Public Use
  Company Number: None

PATIENT
  Sex: Male

DRUGS (4)
  1. TACROLIMUS [Suspect]
     Active Substance: TACROLIMUS
     Indication: Liver transplant
     Dosage: FREQ: TAKE 2 CAPSULES (2 MG TOTAL) BY MOUTH EVERY 12 (TWELVE) HOURS
     Route: 048
     Dates: start: 20210701
  2. MAGNESIUM [Concomitant]
  3. PRENISONE [Concomitant]
  4. PROTEIN [Concomitant]

REACTIONS (1)
  - Death [None]
